FAERS Safety Report 20124452 (Version 1)
Quarter: 2021Q4

REPORT INFORMATION
  Report Type: Spontaneous
  Country: ES (occurrence: ES)
  Receive Date: 20211129
  Receipt Date: 20211129
  Transmission Date: 20220303
  Serious: Yes (Death)
  Sender: FDA-Public Use
  Company Number: None

PATIENT
  Age: 35 Year
  Sex: Female

DRUGS (3)
  1. FLUOXETINE HYDROCHLORIDE [Suspect]
     Active Substance: FLUOXETINE HYDROCHLORIDE
     Dosage: RATIO ,UNIT DOSE:20MILLIGRAM,EFG CAPSULES, 28 CAPSULES
     Route: 048
     Dates: start: 2020
  2. QUETIAPINE [Suspect]
     Active Substance: QUETIAPINE
     Dosage: 60 TABLETS,UNIT DOSE:100MILLIGRAM
     Route: 048
     Dates: start: 2020
  3. LORAZEPAM [Suspect]
     Active Substance: LORAZEPAM
     Dosage: 1MILLIGRAM
     Dates: start: 2020

REACTIONS (1)
  - Suicidal ideation [Fatal]

NARRATIVE: CASE EVENT DATE: 20210101
